FAERS Safety Report 9252800 (Version 1)
Quarter: 2013Q2

REPORT INFORMATION
  Report Type: Spontaneous
  Country: US (occurrence: US)
  Receive Date: 20130424
  Receipt Date: 20130424
  Transmission Date: 20140414
  Serious: No
  Sender: FDA-Public Use
  Company Number: US-BAUSCH-BL-2013-000930

PATIENT
  Age: 65 Year
  Sex: Female

DRUGS (1)
  1. LOTEMAX (LOTEPREDNOL ETABONATE OPHTHALMIC SUSPENSION 0.5%) [Suspect]
     Indication: SEASONAL ALLERGY
     Dosage: ONE DROP IN EACH EYE TWICE DAILY
     Route: 047
     Dates: start: 20130210, end: 20130212

REACTIONS (2)
  - Abnormal sensation in eye [Recovered/Resolved]
  - Medication residue present [Recovered/Resolved]
